FAERS Safety Report 7006900-0 (Version None)
Quarter: 2010Q3

REPORT INFORMATION
  Report Type: 
  Country: None (occurrence: None)
  Receive Date: 20100922
  Receipt Date: 20100910
  Transmission Date: 20110219
  Serious: Yes (Other)
  Sender: FDA-Public Use
  Company Number: US-ELI_LILLY_AND_COMPANY-US201009003981

PATIENT
  Sex: Male

DRUGS (1)
  1. FORTEO [Suspect]
     Dosage: UNK, UNKNOWN

REACTIONS (2)
  - INFLUENZA [None]
  - PYREXIA [None]
